FAERS Safety Report 5767300-4 (Version None)
Quarter: 2008Q2

REPORT INFORMATION
  Report Type: 
  Country: None (occurrence: None)
  Receive Date: 20080606
  Receipt Date: 20080602
  Transmission Date: 20081010
  Serious: Yes (Death, Hospitalization)
  Sender: FDA-Public Use
  Company Number: 2007SP019728

PATIENT
  Age: 64 Year
  Sex: Male
  Weight: 74 kg

DRUGS (8)
  1. TEMODAL [Suspect]
     Indication: GLIOBLASTOMA MULTIFORME
     Dosage: 360 MG/M2;QD;PO; 340 MG/M2;QD;PO
     Route: 048
     Dates: start: 20061208, end: 20061212
  2. TEMODAL [Suspect]
     Indication: GLIOBLASTOMA MULTIFORME
     Dosage: 360 MG/M2;QD;PO; 340 MG/M2;QD;PO
     Route: 048
     Dates: start: 20070105, end: 20070109
  3. TEMODAL [Suspect]
     Indication: GLIOBLASTOMA MULTIFORME
     Dosage: 360 MG/M2;QD;PO; 340 MG/M2;QD;PO
     Route: 048
     Dates: start: 20070202, end: 20070206
  4. TEMODAL [Suspect]
     Indication: GLIOBLASTOMA MULTIFORME
     Dosage: 360 MG/M2;QD;PO; 340 MG/M2;QD;PO
     Route: 048
     Dates: start: 20070302, end: 20070306
  5. TEMODAL [Suspect]
     Indication: GLIOBLASTOMA MULTIFORME
     Dosage: 360 MG/M2;QD;PO; 340 MG/M2;QD;PO
     Route: 048
     Dates: start: 20070330, end: 20070403
  6. KYTRIL [Concomitant]
  7. NAUZELIN [Concomitant]
  8. FAMOTIDINE [Concomitant]

REACTIONS (6)
  - ACTIVITIES OF DAILY LIVING IMPAIRED [None]
  - DECREASED APPETITE [None]
  - DISEASE PROGRESSION [None]
  - HEPATIC FUNCTION ABNORMAL [None]
  - INTRACRANIAL TUMOUR HAEMORRHAGE [None]
  - PNEUMONIA [None]
